FAERS Safety Report 6240296-7 (Version None)
Quarter: 2009Q2

REPORT INFORMATION
  Report Type: 
  Country: None (occurrence: None)
  Receive Date: 20090623
  Receipt Date: 20080623
  Transmission Date: 20091009
  Serious: No
  Sender: FDA-Public Use
  Company Number: US-ASTRAZENECA-2008UW12681

PATIENT
  Age: 70 Year
  Sex: Female
  Weight: 99.8 kg

DRUGS (11)
  1. PULMICORT RESPULES [Suspect]
     Indication: CHRONIC SINUSITIS
     Route: 055
  2. FUROSEMIDE [Concomitant]
  3. GLIMEPIRIDE [Concomitant]
  4. JANUVIA [Concomitant]
  5. OXYBUTIN [Concomitant]
  6. LANTUS [Concomitant]
  7. PLAVIX [Concomitant]
  8. DIOVAN [Concomitant]
  9. TEKTURNA [Concomitant]
  10. COREG [Concomitant]
  11. PREVACID [Concomitant]

REACTIONS (5)
  - BLOOD GLUCOSE INCREASED [None]
  - HEADACHE [None]
  - INSOMNIA [None]
  - SWELLING FACE [None]
  - VISION BLURRED [None]
